FAERS Safety Report 22033721 (Version 1)
Quarter: 2023Q1

REPORT INFORMATION
  Report Type: Spontaneous
  Country: US (occurrence: None)
  Receive Date: 20230222
  Receipt Date: 20230222
  Transmission Date: 20230417
  Serious: No
  Sender: FDA-Public Use
  Company Number: None

PATIENT
  Sex: Female

DRUGS (1)
  1. STELARA [Suspect]
     Active Substance: USTEKINUMAB
     Indication: Crohn^s disease
     Dosage: OTHER FREQUENCY : Q 8WKS;?
     Route: 058
     Dates: start: 202109

REACTIONS (7)
  - Stress [None]
  - Defaecation urgency [None]
  - Faeces discoloured [None]
  - Anxiety [None]
  - Constipation [None]
  - Computerised tomogram pancreas [None]
  - Drug ineffective [None]
